FAERS Safety Report 23207042 (Version 2)
Quarter: 2023Q4

REPORT INFORMATION
  Report Type: Spontaneous
  Country: CN (occurrence: CN)
  Receive Date: 20231120
  Receipt Date: 20231129
  Transmission Date: 20240110
  Serious: Yes (Other)
  Sender: FDA-Public Use
  Company Number: CN-PARATEK PHARMACEUTICALS, INC.-2023PTK00594

PATIENT
  Age: 68 Year
  Sex: Female
  Weight: 45 kg

DRUGS (4)
  1. NUZYRA [Suspect]
     Active Substance: OMADACYCLINE
     Indication: Pneumococcal infection
     Dosage: 0.2 G, 1X/DAY
     Route: 065
     Dates: start: 20230516, end: 20230516
  2. NUZYRA [Suspect]
     Active Substance: OMADACYCLINE
     Indication: Bacterial infection
     Dosage: 0.1 G, 1X/DAY
     Route: 065
     Dates: start: 20230517, end: 20230527
  3. AMPHOTERICIN B CHOLESTERYL SULFATE [Suspect]
     Active Substance: AMPHOTERICIN B CHOLESTERYL SULFATE
     Indication: Aspergillus infection
     Dosage: 50 MG
     Route: 065
     Dates: start: 20230517, end: 20230517
  4. AMPHOTERICIN B CHOLESTERYL SULFATE [Suspect]
     Active Substance: AMPHOTERICIN B CHOLESTERYL SULFATE
     Dosage: 150 MG
     Route: 065
     Dates: start: 20230518, end: 20230525

REACTIONS (2)
  - Drug interaction [Recovering/Resolving]
  - Blood bilirubin increased [Recovering/Resolving]

NARRATIVE: CASE EVENT DATE: 20230520
